FAERS Safety Report 13035356 (Version 3)
Quarter: 2017Q1

REPORT INFORMATION
  Report Type: Spontaneous
  Country: US (occurrence: US)
  Receive Date: 20161216
  Receipt Date: 20170113
  Transmission Date: 20170428
  Serious: No
  Sender: FDA-Public Use
  Company Number: US-BAYER-2016-236212

PATIENT
  Age: 77 Year
  Sex: Female
  Weight: 68.03 kg

DRUGS (4)
  1. MIRALAX [Suspect]
     Active Substance: POLYETHYLENE GLYCOL 3350
     Indication: GASTROINTESTINAL DISORDER
     Dosage: 1 DF, QD
     Route: 048
     Dates: start: 2014, end: 201611
  2. CITRACAL PLUS MAGNESIUM [Suspect]
     Active Substance: CALCIUM\MAGNESIUM\VITAMIN D\ZINC
     Dosage: 1 DF, OM
     Route: 048
     Dates: start: 2006, end: 201610
  3. COZAAR [Concomitant]
     Active Substance: LOSARTAN POTASSIUM
     Dosage: UNK
  4. ZOCOR [Concomitant]
     Active Substance: SIMVASTATIN

REACTIONS (6)
  - Wrong technique in product usage process [Unknown]
  - Product use issue [Unknown]
  - Product availability issue [Unknown]
  - Malaise [Unknown]
  - Unevaluable event [Unknown]
  - Product use issue [None]
